FAERS Safety Report 19913856 (Version 1)
Quarter: 2021Q4

REPORT INFORMATION
  Report Type: Spontaneous
  Country: CN (occurrence: CN)
  Receive Date: 20211004
  Receipt Date: 20211004
  Transmission Date: 20220303
  Serious: Yes (Hospitalization)
  Sender: FDA-Public Use
  Company Number: CN-BAXTER-2021BAX026967

PATIENT
  Age: 69 Year
  Sex: Female
  Weight: 50 kg

DRUGS (12)
  1. CYCLOPHOSPHAMIDE [Suspect]
     Active Substance: CYCLOPHOSPHAMIDE
     Indication: Breast cancer female
     Dosage: CYCLOPHOSPHAMIDE FOR INJECTION 0.9G + 0.9% NS 100ML
     Route: 041
     Dates: start: 20210209, end: 20210209
  2. CYCLOPHOSPHAMIDE [Suspect]
     Active Substance: CYCLOPHOSPHAMIDE
     Dosage: DOSE RE-INTRODUCED; CYCLOPHOSPHAMIDE + 0.9% NS
     Route: 041
  3. SODIUM CHLORIDE [Suspect]
     Active Substance: SODIUM CHLORIDE
     Indication: Medication dilution
     Dosage: CYCLOPHOSPHAMIDE FOR INJECTION 0.9G + 0.9% NS 100ML
     Route: 041
     Dates: start: 20210209, end: 20210209
  4. SODIUM CHLORIDE [Suspect]
     Active Substance: SODIUM CHLORIDE
     Dosage: DOSE RE-INTRODUCED; CYCLOPHOSPHAMIDE + 0.9% NS
     Route: 041
  5. SODIUM CHLORIDE [Suspect]
     Active Substance: SODIUM CHLORIDE
     Dosage: PACLITAXEL FOR INJECTION (ALBUMIN-BINDING TYPE) 400MG + 0.9% NS100ML
     Route: 041
     Dates: start: 20210209, end: 20210209
  6. SODIUM CHLORIDE [Suspect]
     Active Substance: SODIUM CHLORIDE
     Dosage: DOSE RE-INTRODUCED; PACLITAXEL FOR INJECTION (ALBUMIN-BINDING TYPE) + 0.9% NS
     Route: 041
  7. DEXTROSE [Suspect]
     Active Substance: DEXTROSE
     Indication: Medication dilution
     Dosage: DOXORUBICIN HYDROCHLORIDE FOR INJECTION 70MG + 5% GS 100ML
     Route: 041
     Dates: start: 20210209, end: 20210209
  8. DEXTROSE [Suspect]
     Active Substance: DEXTROSE
     Dosage: DOSE RE-INTRODUCED; DOXORUBICIN HYDROCHLORIDE + 5% GS
     Route: 041
  9. PACLITAXEL [Suspect]
     Active Substance: PACLITAXEL
     Indication: Breast cancer female
     Dosage: PACLITAXEL FOR INJECTION (ALBUMIN-BINDING TYPE) 400MG + 0.9% NS100ML
     Route: 041
     Dates: start: 20210209, end: 20210209
  10. PACLITAXEL [Suspect]
     Active Substance: PACLITAXEL
     Dosage: DOSE RE-INTRODUCED; PACLITAXEL FOR INJECTION (ALBUMIN-BINDING TYPE) + 0.9% NS
     Route: 041
  11. DOXORUBICIN HYDROCHLORIDE [Suspect]
     Active Substance: DOXORUBICIN HYDROCHLORIDE
     Indication: Breast cancer female
     Dosage: DOXORUBICIN HYDROCHLORIDE FOR INJECTION 70MG + 5% GS 100ML
     Route: 041
     Dates: start: 20210209, end: 20210209
  12. DOXORUBICIN HYDROCHLORIDE [Suspect]
     Active Substance: DOXORUBICIN HYDROCHLORIDE
     Dosage: DOSE RE-INTRODUCED; DOXORUBICIN HYDROCHLORIDE + 5% GS
     Route: 041

REACTIONS (1)
  - White blood cell count decreased [Recovering/Resolving]

NARRATIVE: CASE EVENT DATE: 20210216
